FAERS Safety Report 4378769-4 (Version None)
Quarter: 2004Q2

REPORT INFORMATION
  Report Type: 
  Country: None (occurrence: None)
  Receive Date: 20040609
  Receipt Date: 20040524
  Transmission Date: 20050107
  Serious: Yes (Other)
  Sender: FDA-Public Use
  Company Number: USA040568394

PATIENT
  Age: 60 Year
  Sex: Female
  Weight: 75 kg

DRUGS (3)
  1. ZYPREXA [Suspect]
     Indication: SLEEP DISORDER
     Dosage: 5 MG/1 AT BEDTIME
     Dates: start: 20030501
  2. TRILEPTAL [Concomitant]
  3. KEPPRA [Concomitant]

REACTIONS (2)
  - BREAST CANCER [None]
  - DIABETES MELLITUS NON-INSULIN-DEPENDENT [None]
